FAERS Safety Report 7217823-6 (Version None)
Quarter: 2011Q1

REPORT INFORMATION
  Report Type: 
  Country: None (occurrence: None)
  Receive Date: 20110110
  Receipt Date: 20101231
  Transmission Date: 20110831
  Serious: Yes (Other)
  Sender: FDA-Public Use
  Company Number: US-ASTRAZENECA-2011SE00035

PATIENT
  Age: 47 Year
  Sex: Male

DRUGS (3)
  1. LIDOCAINE HCL VISCOUS [Suspect]
     Indication: APPLICATION SITE ANAESTHESIA
     Route: 061
  2. GLYCOPYRROLATE [Suspect]
     Indication: HYPERCHLORHYDRIA
     Route: 042
  3. LIDOCAINE NEBULIZED [Concomitant]

REACTIONS (2)
  - OVERDOSE [None]
  - GRAND MAL CONVULSION [None]
